FAERS Safety Report 16119843 (Version 4)
Quarter: 2019Q2

REPORT INFORMATION
  Report Type: Report from Study
  Country: US (occurrence: US)
  Receive Date: 20190326
  Receipt Date: 20190621
  Transmission Date: 20190711
  Serious: Yes (Hospitalization, Other)
  Sender: FDA-Public Use
  Company Number: US-MALLINCKRODT-T201804234

PATIENT
  Age: 83 Year
  Sex: Male

DRUGS (7)
  1. REPOSITORY CORTICOTROPIN INJECTION [Suspect]
     Active Substance: CORTICOTROPIN
     Dosage: 80 UNITS, UNK
     Route: 065
  2. REPOSITORY CORTICOTROPIN INJECTION [Suspect]
     Active Substance: CORTICOTROPIN
     Dosage: 40 UNITS/0.5 ML, 2 TIMES PER WEEK  (WEDNESDAY, SATURDAY)
     Route: 058
  3. HYDROXYCHLOROQUINE [Suspect]
     Active Substance: HYDROXYCHLOROQUINE
     Indication: SYSTEMIC LUPUS ERYTHEMATOSUS
     Dosage: UNK
     Route: 065
  4. REPOSITORY CORTICOTROPIN INJECTION [Suspect]
     Active Substance: CORTICOTROPIN
     Indication: NEPHROTIC SYNDROME
     Dosage: 40 UNITS/0.5 ML, 2 TIMES PER WEEK  (WEDNESDAY, SATURDAY)
     Route: 058
     Dates: start: 20180417
  5. TACROLIMUS. [Suspect]
     Active Substance: TACROLIMUS
     Indication: NEPHROTIC SYNDROME
     Dosage: 1 PILL IN MORNING AND EVENING
     Route: 065
     Dates: start: 20190503
  6. REPOSITORY CORTICOTROPIN INJECTION [Suspect]
     Active Substance: CORTICOTROPIN
     Dosage: 40 UNITS/0.5 ML, 2 TIMES PER WEEK  (WEDNESDAY, SATURDAY)
     Route: 058
  7. REPOSITORY CORTICOTROPIN INJECTION [Suspect]
     Active Substance: CORTICOTROPIN
     Dosage: 40 UNITS/0.5 ML, 2 TIMES PER WEEK  (WEDNESDAY, SATURDAY)
     Route: 058

REACTIONS (24)
  - Dizziness [Recovering/Resolving]
  - Eye laser surgery [Unknown]
  - Dyspnoea [Unknown]
  - Product dose omission [Not Recovered/Not Resolved]
  - Coronary artery occlusion [Recovering/Resolving]
  - Pneumonia [Recovering/Resolving]
  - Blood cholesterol increased [Unknown]
  - Pain in extremity [Not Recovered/Not Resolved]
  - Hypoacusis [Unknown]
  - Peripheral swelling [Not Recovered/Not Resolved]
  - Blood pressure increased [Not Recovered/Not Resolved]
  - Cataract [Unknown]
  - Blood pressure fluctuation [Not Recovered/Not Resolved]
  - Proteinuria [Not Recovered/Not Resolved]
  - Drug ineffective [Not Recovered/Not Resolved]
  - Diabetes mellitus [Unknown]
  - Pruritus [Not Recovered/Not Resolved]
  - Catheterisation cardiac [Unknown]
  - Rheumatoid arthritis [Not Recovered/Not Resolved]
  - Anaemia [Unknown]
  - Weight decreased [Unknown]
  - Nasopharyngitis [Recovering/Resolving]
  - Myalgia [Unknown]
  - Glaucoma [Unknown]

NARRATIVE: CASE EVENT DATE: 2018
